FAERS Safety Report 8943847 (Version 2)
Quarter: 2012Q4

REPORT INFORMATION
  Report Type: Report from Study
  Country: DE (occurrence: DE)
  Receive Date: 20121204
  Receipt Date: 20121210
  Transmission Date: 20130627
  Serious: Yes (Hospitalization)
  Sender: FDA-Public Use
  Company Number: DE-VERTEX PHARMACEUTICALS INC.-2012-025543

PATIENT
  Age: 41 Year
  Sex: Male
  Weight: 94 kg

DRUGS (6)
  1. VX-950 (TELAPREVIR) [Suspect]
     Indication: HEPATITIS C
     Dosage: 375 mg, qd
     Route: 048
     Dates: start: 20120903, end: 20121126
  2. RIBAVIRIN [Suspect]
     Indication: HEPATITIS C
     Dosage: Dosage Form: Tablet, 1200 mg daily 3 doses in the am and 3 doses in the pm
     Route: 048
     Dates: start: 20120903
  3. PEGINTERFERON ALFA-2A [Suspect]
     Indication: HEPATITIS C
     Dosage: Dosage Form: Injection
     Route: 058
     Dates: start: 20120903, end: 20121203
  4. METHADON [Concomitant]
     Indication: EX-DRUG ABUSER
     Dosage: started pre-trial
     Route: 048
     Dates: end: 20120903
  5. METHADON [Concomitant]
     Dosage: 9 ml, qd
     Route: 048
     Dates: start: 20120904
  6. PARACETAMOL [Concomitant]
     Dosage: 500 mg, prn
     Route: 048
     Dates: start: 20120903

REACTIONS (1)
  - Hypertension [Recovered/Resolved]
